FAERS Safety Report 14756156 (Version 1)
Quarter: 2018Q2

REPORT INFORMATION
  Report Type: Spontaneous
  Country: US (occurrence: US)
  Receive Date: 20180413
  Receipt Date: 20180413
  Transmission Date: 20180711
  Serious: No
  Sender: FDA-Public Use
  Company Number: US-BION-006738

PATIENT
  Age: 74 Year
  Sex: Female
  Weight: 64 kg

DRUGS (2)
  1. ALEVE [Suspect]
     Active Substance: NAPROXEN SODIUM
     Indication: INFLAMMATION
     Route: 065
  2. ASPIRIN REGIMEN BAYER [Concomitant]
     Active Substance: ASPIRIN
     Dosage: STRENGTH: 81 MG

REACTIONS (1)
  - Intercepted drug prescribing error [Not Recovered/Not Resolved]
